FAERS Safety Report 20005256 (Version 2)
Quarter: 2022Q1

REPORT INFORMATION
  Report Type: Spontaneous
  Country: US (occurrence: US)
  Receive Date: 20211028
  Receipt Date: 20220128
  Transmission Date: 20220423
  Serious: No
  Sender: FDA-Public Use
  Company Number: US-BIOVITRUM-2021US9424

PATIENT
  Sex: Female
  Weight: 5 kg

DRUGS (3)
  1. SYNAGIS [Suspect]
     Active Substance: PALIVIZUMAB
     Indication: Premature baby
     Route: 030
  2. EPINEPHRINE [Concomitant]
     Active Substance: EPINEPHRINE
  3. SYNAGIS [Suspect]
     Active Substance: PALIVIZUMAB
     Indication: Lung disorder

REACTIONS (1)
  - Adverse drug reaction [Unknown]
